FAERS Safety Report 6240439-5 (Version None)
Quarter: 2009Q2

REPORT INFORMATION
  Report Type: 
  Country: None (occurrence: None)
  Receive Date: 20090623
  Receipt Date: 20090612
  Transmission Date: 20091009
  Serious: Yes (Hospitalization)
  Sender: FDA-Public Use
  Company Number: US-NOVOPROD-288297

PATIENT
  Sex: Female
  Weight: 108.39 kg

DRUGS (5)
  1. NOVOLOG [Suspect]
     Indication: DIABETES MELLITUS
     Dosage: SLIDING SCALE (10 U WITH MEALED AND MEDICATION)
     Route: 058
     Dates: start: 20080101
  2. PREDNISONE TAB [Suspect]
     Indication: ASTHMA
  3. LANTUS [Concomitant]
     Indication: DIABETES MELLITUS
  4. LEVOXYL [Concomitant]
     Indication: HYPOTHYROIDISM
  5. FORTEO [Concomitant]
     Indication: OSTEOPOROSIS

REACTIONS (6)
  - BLOOD GLUCOSE DECREASED [None]
  - BLOOD GLUCOSE INCREASED [None]
  - FLUID RETENTION [None]
  - FOOT FRACTURE [None]
  - RESPIRATORY ARREST [None]
  - TREMOR [None]
